FAERS Safety Report 16802681 (Version 1)
Quarter: 2019Q3

REPORT INFORMATION
  Report Type: Spontaneous
  Country: DK (occurrence: DK)
  Receive Date: 20190912
  Receipt Date: 20190912
  Transmission Date: 20191005
  Serious: Yes (Other)
  Sender: FDA-Public Use
  Company Number: DK-ASTRAZENECA-2019SF27495

PATIENT
  Age: 46 Year
  Sex: Female

DRUGS (4)
  1. CISORDINOL [Interacting]
     Active Substance: ZUCLOPENTHIXOL
     Route: 048
     Dates: end: 2017
  2. QUETIAPINE. [Suspect]
     Active Substance: QUETIAPINE
     Indication: DEPRESSION
     Route: 048
  3. BROMAM [Interacting]
     Active Substance: BROMAZEPAM
     Indication: ANXIETY
     Dosage: DOSIS SVINGEDE FRA 6 MG TIL 12 MG.
     Route: 048
     Dates: start: 201006, end: 20171025
  4. ALPROX [Suspect]
     Active Substance: ALPRAZOLAM
     Indication: ANXIETY
     Route: 048
     Dates: end: 20180205

REACTIONS (9)
  - Drug interaction [Recovered/Resolved]
  - Disturbance in attention [Unknown]
  - Restlessness [Unknown]
  - Product prescribing issue [Recovered/Resolved]
  - Feeling abnormal [Recovered/Resolved]
  - Cognitive disorder [Unknown]
  - Withdrawal syndrome [Unknown]
  - Aphasia [Unknown]
  - Muscle spasms [Unknown]

NARRATIVE: CASE EVENT DATE: 2009
